FAERS Safety Report 7062969-9 (Version None)
Quarter: 2010Q4

REPORT INFORMATION
  Report Type: 
  Country: None (occurrence: None)
  Receive Date: 20101026
  Receipt Date: 20100311
  Transmission Date: 20110411
  Serious: Yes (Other)
  Sender: FDA-Public Use
  Company Number: US-PFIZER INC-2010033862

PATIENT
  Sex: Female

DRUGS (3)
  1. LIPITOR [Suspect]
     Route: 048
  2. CALTRATE [Suspect]
     Indication: MINERAL SUPPLEMENTATION
     Route: 048
  3. CENTRUM SILVER [Suspect]
     Indication: MEDICAL DIET
     Route: 048

REACTIONS (1)
  - HEPATIC ENZYME INCREASED [None]
